FAERS Safety Report 22960042 (Version 3)
Quarter: 2023Q4

REPORT INFORMATION
  Report Type: Report from Study
  Country: US (occurrence: US)
  Receive Date: 20230920
  Receipt Date: 20231023
  Transmission Date: 20240110
  Serious: Yes (Hospitalization, Other)
  Sender: FDA-Public Use
  Company Number: US-ABBVIE-5412732

PATIENT
  Age: 66 Year
  Sex: Male
  Weight: 68.038 kg

DRUGS (4)
  1. HUMIRA [Suspect]
     Active Substance: ADALIMUMAB
     Indication: Psoriatic arthropathy
     Dosage: FORM STRENGTH: 40MG?CITRATE FREE
     Route: 058
     Dates: start: 2016
  2. PROPRANOLOL [Concomitant]
     Active Substance: PROPRANOLOL HYDROCHLORIDE
     Indication: Anxiety
  3. REPATHA [Concomitant]
     Active Substance: EVOLOCUMAB
     Indication: Blood cholesterol increased
  4. PANTOPRAZOLE [Concomitant]
     Active Substance: PANTOPRAZOLE
     Indication: Antacid therapy
     Dosage: 40 MG

REACTIONS (6)
  - Transient ischaemic attack [Unknown]
  - Cerebrovascular accident [Recovering/Resolving]
  - Panic disorder [Recovering/Resolving]
  - Anxiety [Recovered/Resolved]
  - Supraventricular tachycardia [Unknown]
  - Impaired work ability [Unknown]

NARRATIVE: CASE EVENT DATE: 20230420
